FAERS Safety Report 14801155 (Version 2)
Quarter: 2018Q2

REPORT INFORMATION
  Report Type: Spontaneous
  Country: CA (occurrence: CA)
  Receive Date: 20180424
  Receipt Date: 20180529
  Transmission Date: 20180711
  Serious: Yes (Other)
  Sender: FDA-Public Use
  Company Number: CA-CELLTRION INC.-2018CA019224

PATIENT

DRUGS (7)
  1. METHOTREXATE SODIUM. [Suspect]
     Active Substance: METHOTREXATE SODIUM
     Dosage: 15 MG, 1/WEEKLY ( ON SUNDAYS)
     Route: 065
     Dates: start: 20171119
  2. IRON [Concomitant]
     Active Substance: IRON
     Dosage: 300 MG, DAILY
     Route: 048
     Dates: start: 201710
  3. INFLECTRA [Suspect]
     Active Substance: INFLIXIMAB-DYYB
     Indication: CROHN^S DISEASE
     Dosage: 305 MG, CYCLIC (EVERY 0,2,6 WEEKS AND THEN EVERY 8 WEEKS)
     Route: 042
     Dates: start: 20180103
  4. INFLECTRA [Suspect]
     Active Substance: INFLIXIMAB-DYYB
     Dosage: 305 MG, CYCLIC (EVERY 0,2,6 WEEKS AND THEN EVERY 8 WEEKS)
     Route: 042
     Dates: start: 20180213, end: 20180213
  5. METHOTREXATE SODIUM. [Suspect]
     Active Substance: METHOTREXATE SODIUM
     Indication: PRODUCT USED FOR UNKNOWN INDICATION
     Dosage: 25 MG
     Route: 065
     Dates: start: 201710, end: 20171119
  6. FOLIC ACID. [Concomitant]
     Active Substance: FOLIC ACID
     Dosage: 1 MG, DAILY EXCEPT METHOTREXATE DAY
     Route: 065
     Dates: start: 201710
  7. PREDNISONE. [Concomitant]
     Active Substance: PREDNISONE
     Dosage: 40 MG
     Route: 065
     Dates: start: 20171111

REACTIONS (4)
  - Cough [Not Recovered/Not Resolved]
  - Lower respiratory tract infection [Recovering/Resolving]
  - Malaise [Not Recovered/Not Resolved]
  - Rhinorrhoea [Not Recovered/Not Resolved]
